FAERS Safety Report 6883534-X (Version None)
Quarter: 2010Q3

REPORT INFORMATION
  Report Type: 
  Country: None (occurrence: None)
  Receive Date: 20100729
  Receipt Date: 20100712
  Transmission Date: 20110219
  Serious: Yes (Other)
  Sender: FDA-Public Use
  Company Number: B0662938A

PATIENT
  Sex: Female
  Weight: 102 kg

DRUGS (3)
  1. ALLI [Suspect]
     Dosage: 3CAP PER DAY
     Route: 065
     Dates: start: 20100618
  2. STABLON [Concomitant]
     Indication: DEPRESSION
     Route: 065
  3. NORDETTE-21 [Concomitant]
     Indication: CONTRACEPTION
     Route: 065

REACTIONS (3)
  - ABDOMINAL PAIN [None]
  - CONSTIPATION [None]
  - HAEMATOCHEZIA [None]
